FAERS Safety Report 5170604-X (Version None)
Quarter: 2006Q4

REPORT INFORMATION
  Report Type: 
  Country: None (occurrence: None)
  Receive Date: 20061205
  Receipt Date: 20061121
  Transmission Date: 20070319
  Serious: Yes (Hospitalization)
  Sender: FDA-Public Use
  Company Number: 2006145755

PATIENT
  Age: 89 Year
  Sex: Female

DRUGS (12)
  1. LATANOPROST [Suspect]
     Indication: GLAUCOMA
     Dosage: 50 MCG (50 MCG, 1 IN 1 D), OPHTHALMIC
     Route: 047
     Dates: start: 20030619
  2. ADCAL-D3                              (CALCIUM CARBONATE, COLECALCIFER [Concomitant]
  3. ALENDRONIC ACID                           (ALENDRONIC ACID) [Concomitant]
  4. BRINZOLAMIDE                               (BRINZOLAMIDE) [Concomitant]
  5. CEPHALEXIN [Concomitant]
  6. CLONAZEPAM [Concomitant]
  7. FOLIC ACID [Concomitant]
  8. FUROSEMIDE [Concomitant]
  9. LOSARTAN POTASSIUM [Concomitant]
  10. METOCLOPRAMIDE [Concomitant]
  11. OMEPRAZOLE [Concomitant]
  12. ACETAMINOPHEN [Concomitant]

REACTIONS (1)
  - ATRIAL FIBRILLATION [None]
